FAERS Safety Report 11551145 (Version 1)
Quarter: 2015Q3

REPORT INFORMATION
  Report Type: Spontaneous
  Country: US (occurrence: US)
  Receive Date: 20150903
  Receipt Date: 20150903
  Transmission Date: 20151125
  Serious: No
  Sender: FDA-Public Use
  Company Number: US-ELI_LILLY_AND_COMPANY-US201208009673

PATIENT
  Age: 69 Year
  Sex: Female

DRUGS (4)
  1. HUMALOG [Suspect]
     Active Substance: INSULIN LISPRO
     Indication: TYPE 2 DIABETES MELLITUS
     Dosage: 20 IU, PRN
  2. SYMLINPEN [Concomitant]
     Active Substance: PRAMLINTIDE ACETATE
     Dosage: 60 IU, UNK
  3. HUMALOG [Suspect]
     Active Substance: INSULIN LISPRO
     Dosage: 20 IU, PRN
  4. GLUCOPHAGE [Concomitant]
     Active Substance: METFORMIN HYDROCHLORIDE
     Dosage: 850 MG, UNK

REACTIONS (12)
  - Areflexia [Unknown]
  - Blood glucose decreased [Unknown]
  - Musculoskeletal stiffness [Unknown]
  - Arthralgia [Unknown]
  - Hyperglycaemia [Unknown]
  - Back disorder [Unknown]
  - Underdose [Unknown]
  - Visual impairment [Unknown]
  - Rheumatoid arthritis [Not Recovered/Not Resolved]
  - Arthropathy [Unknown]
  - Sciatica [Unknown]
  - Incorrect product storage [Unknown]

NARRATIVE: CASE EVENT DATE: 2006
